FAERS Safety Report 5373349-6 (Version None)
Quarter: 2007Q2

REPORT INFORMATION
  Report Type: 
  Country: None (occurrence: None)
  Receive Date: 20070628
  Receipt Date: 20070622
  Transmission Date: 20071010
  Serious: Yes (Hospitalization)
  Sender: FDA-Public Use
  Company Number: DEWYE897422JUN07

PATIENT
  Age: 38 Year
  Sex: Male
  Weight: 79.7 kg

DRUGS (6)
  1. VENLAFAXINE HCL [Suspect]
     Indication: PERSONALITY DISORDER
     Dosage: 75 MG PER DAY
     Route: 048
     Dates: start: 20061024, end: 20061027
  2. VENLAFAXINE HCL [Interacting]
     Dosage: 150 MG PER DAY
     Route: 048
     Dates: start: 20061028, end: 20061110
  3. VENLAFAXINE HCL [Interacting]
     Dosage: 75 MG PER DAY
     Route: 048
     Dates: start: 20061111, end: 20061114
  4. MELPERONE [Interacting]
     Dosage: 50 MG PER DAY
     Route: 048
     Dates: start: 20061023, end: 20061105
  5. DIAZEPAM [Concomitant]
     Dosage: 2 TILL 8 MG PER DAY (STEP-BY-STEP REDUCTION)
     Route: 048
     Dates: start: 20061024, end: 20061030
  6. DIAZEPAM [Concomitant]
     Dosage: 2 MG PER DAY
     Route: 048
     Dates: start: 20061031, end: 20061101

REACTIONS (2)
  - DRUG INTERACTION [None]
  - RESTLESS LEGS SYNDROME [None]
